FAERS Safety Report 6108391-0 (Version None)
Quarter: 2009Q1

REPORT INFORMATION
  Report Type: 
  Country: None (occurrence: None)
  Receive Date: 20090309
  Receipt Date: 20090223
  Transmission Date: 20090719
  Serious: Yes (Disabling, Other)
  Sender: FDA-Public Use
  Company Number: PHHY2009CO06766

PATIENT
  Age: 30 Year
  Sex: Female

DRUGS (5)
  1. SYNTOCINON [Suspect]
     Indication: INDUCED LABOUR
     Dosage: 3IU
     Dates: start: 20081021, end: 20081021
  2. SYNTOCINON [Suspect]
     Indication: POSTPARTUM HAEMORRHAGE
     Dosage: 15 IU
  3. SYNTOCINON [Suspect]
     Indication: UTERINE ATONY
  4. METHERGINE [Concomitant]
     Dosage: 0.2 MG, UNK
     Route: 030
  5. MISOPROSTOL [Concomitant]
     Dosage: 400 UG, UNK

REACTIONS (8)
  - ACTIVATED PARTIAL THROMBOPLASTIN TIME PROLONGED [None]
  - CAESAREAN SECTION [None]
  - DRUG EXPOSURE DURING PREGNANCY [None]
  - HAEMOGLOBIN DECREASED [None]
  - HISTOLOGY ABNORMAL [None]
  - HYSTERECTOMY [None]
  - POSTPARTUM HAEMORRHAGE [None]
  - UTERINE ATONY [None]
